FAERS Safety Report 4599121-2 (Version None)
Quarter: 2005Q1

REPORT INFORMATION
  Report Type: 
  Country: None (occurrence: None)
  Receive Date: 20050302
  Receipt Date: 20050221
  Transmission Date: 20050727
  Serious: Yes (Death, Hospitalization)
  Sender: FDA-Public Use
  Company Number: 2005-02-1356

PATIENT
  Age: 51 Year
  Sex: Male

DRUGS (2)
  1. PEG-INTERFERON ALFA-2B INJECTABLE POWDER [Suspect]
     Indication: HEPATITIS C
     Dates: start: 20040924
  2. RIBAVIRIN [Suspect]
     Indication: HEPATITIS C
     Dates: start: 20040924

REACTIONS (1)
  - ROAD TRAFFIC ACCIDENT [None]
